FAERS Safety Report 6716664-3 (Version None)
Quarter: 2010Q2

REPORT INFORMATION
  Report Type: 
  Country: None (occurrence: None)
  Receive Date: 20100510
  Receipt Date: 20100429
  Transmission Date: 20101027
  Serious: Yes (Hospitalization)
  Sender: FDA-Public Use
  Company Number: US-BIOGENIDEC-2010BI008902

PATIENT
  Age: 47 Year
  Sex: Female
  Weight: 96 kg

DRUGS (7)
  1. TYSABRI [Suspect]
     Indication: MULTIPLE SCLEROSIS
     Route: 042
     Dates: start: 20070419
  2. GABAPENTIN [Concomitant]
     Indication: NEURALGIA
  3. KLONOPIN [Concomitant]
  4. WELLBUTRIN [Concomitant]
  5. MACROBID [Concomitant]
  6. FLOMAX [Concomitant]
  7. PRILOSEC [Concomitant]

REACTIONS (1)
  - LOWER LIMB FRACTURE [None]
